FAERS Safety Report 11119286 (Version 1)
Quarter: 2015Q2

REPORT INFORMATION
  Report Type: Spontaneous
  Country: US (occurrence: US)
  Receive Date: 20150518
  Receipt Date: 20150518
  Transmission Date: 20150821
  Serious: No
  Sender: FDA-Public Use
  Company Number: US-PFIZER INC-2015167470

PATIENT
  Sex: Male

DRUGS (2)
  1. ADVIL MIGRAINE [Suspect]
     Active Substance: IBUPROFEN
     Indication: MIGRAINE
  2. ADVIL MIGRAINE [Suspect]
     Active Substance: IBUPROFEN
     Indication: PAIN

REACTIONS (1)
  - Drug ineffective [Unknown]
